FAERS Safety Report 11094168 (Version 1)
Quarter: 2015Q2

REPORT INFORMATION
  Report Type: Spontaneous
  Country: US (occurrence: US)
  Receive Date: 20150506
  Receipt Date: 20150506
  Transmission Date: 20150821
  Serious: Yes (Other)
  Sender: FDA-Public Use
  Company Number: US-GLAXOSMITHKLINE-US2015058422

PATIENT
  Age: 67 Year
  Sex: Female

DRUGS (10)
  1. ATORVASTATIN [Concomitant]
     Active Substance: ATORVASTATIN
  2. TRAZODONE [Concomitant]
     Active Substance: TRAZODONE HYDROCHLORIDE
  3. PROAIR HFA [Concomitant]
     Active Substance: ALBUTEROL SULFATE
  4. ADVAIR DISKUS [Suspect]
     Active Substance: FLUTICASONE PROPIONATE\SALMETEROL XINAFOATE
     Indication: ASTHMA
  5. FLUTICASONE PROPIONATE. [Concomitant]
     Active Substance: FLUTICASONE PROPIONATE
  6. LORAZEPAM. [Concomitant]
     Active Substance: LORAZEPAM
  7. RANITIDINE HYDROCHLORIDE. [Concomitant]
     Active Substance: RANITIDINE HYDROCHLORIDE
  8. ADVAIR DISKUS [Suspect]
     Active Substance: FLUTICASONE PROPIONATE\SALMETEROL XINAFOATE
     Indication: BRONCHIECTASIS
     Dosage: 1 PUFF(S), BID  (250/50MCG)
     Route: 055
     Dates: start: 201404
  9. ATENOLOL. [Concomitant]
     Active Substance: ATENOLOL
  10. COMBIGAN [Concomitant]
     Active Substance: BRIMONIDINE TARTRATE\TIMOLOL MALEATE

REACTIONS (2)
  - Glaucoma [Not Recovered/Not Resolved]
  - Pneumonia [Unknown]

NARRATIVE: CASE EVENT DATE: 201501
